FAERS Safety Report 13165243 (Version 1)
Quarter: 2017Q1

REPORT INFORMATION
  Report Type: Spontaneous
  Country: CA (occurrence: CA)
  Receive Date: 20170131
  Receipt Date: 20170131
  Transmission Date: 20170428
  Serious: Yes (Other)
  Sender: FDA-Public Use
  Company Number: CA-ROCHE-1886135

PATIENT
  Sex: Male

DRUGS (7)
  1. HYDROXYCHLOROQUINE SULFATE. [Concomitant]
     Active Substance: HYDROXYCHLOROQUINE SULFATE
     Route: 048
  2. ACTEMRA [Suspect]
     Active Substance: TOCILIZUMAB
     Indication: PRODUCT USED FOR UNKNOWN INDICATION
     Route: 065
  3. CELEBREX [Concomitant]
     Active Substance: CELECOXIB
     Route: 065
  4. ENBREL [Suspect]
     Active Substance: ETANERCEPT
     Indication: RHEUMATOID ARTHRITIS
     Route: 058
  5. METHOTREXATE. [Concomitant]
     Active Substance: METHOTREXATE
     Route: 048
  6. RITUXAN [Suspect]
     Active Substance: RITUXIMAB
     Indication: PRODUCT USED FOR UNKNOWN INDICATION
     Route: 042
  7. FOLIC ACID. [Concomitant]
     Active Substance: FOLIC ACID
     Route: 065

REACTIONS (6)
  - Synovitis [Unknown]
  - Osteoarthritis [Unknown]
  - Treatment failure [Unknown]
  - Rheumatoid arthritis [Unknown]
  - Activities of daily living impaired [Unknown]
  - Drug ineffective [Unknown]
